FAERS Safety Report 24196172 (Version 1)
Quarter: 2024Q3

REPORT INFORMATION
  Report Type: Spontaneous
  Country: CN (occurrence: CN)
  Receive Date: 20240809
  Receipt Date: 20240809
  Transmission Date: 20241017
  Serious: Yes (Hospitalization, Other)
  Sender: ELI LILLY AND CO
  Company Number: CN-Merck Healthcare KGaA-2024041673

PATIENT
  Age: 61 Year
  Sex: Male
  Weight: 52 kg

DRUGS (5)
  1. ERBITUX [Suspect]
     Active Substance: CETUXIMAB
     Indication: Colon cancer
     Dosage: 0.7 G, 2/M
     Route: 041
     Dates: start: 20240612
  2. OXALIPLATIN [Suspect]
     Active Substance: OXALIPLATIN
     Indication: Colon cancer
     Dosage: 120 MG, 2/M
     Route: 041
     Dates: start: 20240612, end: 20240612
  3. LEUCOVORIN CALCIUM [Suspect]
     Active Substance: LEUCOVORIN CALCIUM
     Indication: Colon cancer
     Dosage: 0.6 G, 2/M
     Route: 041
     Dates: start: 20240612, end: 20240612
  4. FLUOROURACIL [Suspect]
     Active Substance: FLUOROURACIL
     Indication: Colon cancer
     Dosage: 0.6 G, 2/M
     Route: 042
     Dates: start: 20240612, end: 20240612
  5. FLUOROURACIL [Suspect]
     Active Substance: FLUOROURACIL
     Dosage: 3.5 G, 2/M
     Route: 042
     Dates: end: 20240614

REACTIONS (1)
  - Neutrophil count decreased [Recovering/Resolving]

NARRATIVE: CASE EVENT DATE: 20240627
